FAERS Safety Report 15649611 (Version 2)
Quarter: 2018Q4

REPORT INFORMATION
  Report Type: Report from Study
  Country: None (occurrence: BE)
  Receive Date: 20181122
  Receipt Date: 20181128
  Transmission Date: 20190205
  Serious: Yes (Hospitalization)
  Sender: FDA-Public Use
  Company Number: BE-ABBVIE-18S-013-2562563-00

PATIENT
  Sex: Male

DRUGS (17)
  1. DUODOPA [Suspect]
     Active Substance: CARBIDOPA\LEVODOPA
     Dosage: MD=7.5ML, CD:8ML/HR DURING 16HRS, ED=2ML
     Route: 050
     Dates: start: 20181119
  2. FORLAX [Concomitant]
     Active Substance: POLYETHYLENE GLYCOL 4000
     Indication: PRODUCT USED FOR UNKNOWN INDICATION
     Route: 065
  3. APOCARD [Concomitant]
     Active Substance: FLECAINIDE ACETATE
     Indication: PRODUCT USED FOR UNKNOWN INDICATION
     Route: 065
  4. ELIQUIS [Concomitant]
     Active Substance: APIXABAN
     Indication: PRODUCT USED FOR UNKNOWN INDICATION
     Route: 065
  5. DUODOPA [Suspect]
     Active Substance: CARBIDOPA\LEVODOPA
     Indication: PARKINSON^S DISEASE
     Dosage: MD=7.5ML, CD=2.6ML/HR DURING 16HRS, ED=2ML
     Route: 050
     Dates: start: 20181112, end: 20181116
  6. DUODOPA [Suspect]
     Active Substance: CARBIDOPA\LEVODOPA
     Dosage: MD=7.5ML, CD=2.6ML/HR DURING 16HRS, ED=2ML
     Route: 050
     Dates: start: 20181116, end: 20181119
  7. PROLOPA 125 HBS [Concomitant]
     Indication: PARKINSON^S DISEASE
     Dosage: FORM STRENGTH: 100MG/25MG??UNIT DOSE: 2 CAPSULE
     Route: 048
  8. ACTRAPID [Concomitant]
     Active Substance: INSULIN HUMAN
     Indication: PRODUCT USED FOR UNKNOWN INDICATION
     Route: 065
  9. PROLOPA 125 DISP [Concomitant]
     Indication: PARKINSON^S DISEASE
     Dosage: FORM STRENGTH: 100MG/25MG
     Route: 048
  10. PROLOPA 125 HBS [Concomitant]
     Dosage: FORM STRENGTH: 100MG/25MG??UNIT DOSE: 2 UNITS
     Route: 065
  11. GLUCOPHAGE [Concomitant]
     Active Substance: METFORMIN HYDROCHLORIDE
     Indication: PRODUCT USED FOR UNKNOWN INDICATION
     Route: 065
  12. GLURENORM [Concomitant]
     Active Substance: GLIQUIDONE
     Indication: PRODUCT USED FOR UNKNOWN INDICATION
     Route: 065
  13. PROLOPA 125 DISP [Concomitant]
     Dosage: FORM STRENGTH: 100MG/25MG, RESCUE MEDICATION
     Route: 048
  14. PROLOPA 250 [Concomitant]
     Indication: PARKINSON^S DISEASE
     Dosage: FORM STRENGTH: 200MG/50MG UNIT DOSE: 0.75 TABLET 3 TIMES A DAY + 0.5 TABLET ONCE A DAY
     Route: 048
  15. AMLOR [Concomitant]
     Active Substance: AMLODIPINE BESYLATE
     Indication: PRODUCT USED FOR UNKNOWN INDICATION
     Route: 065
  16. BETMIGA [Concomitant]
     Active Substance: MIRABEGRON
     Indication: PRODUCT USED FOR UNKNOWN INDICATION
     Route: 065
  17. PROLOPA 250 [Concomitant]
     Dosage: FORM STRENGTH: 200MG/50MG UNIT DOSE: 0.75 3 TIMES A DAY + 0.5 ONCE A DAY, RESCUE MED
     Route: 065

REACTIONS (3)
  - Musculoskeletal pain [Recovering/Resolving]
  - Procedural pain [Recovering/Resolving]
  - Flatulence [Recovered/Resolved]

NARRATIVE: CASE EVENT DATE: 2018
